FAERS Safety Report 26211773 (Version 1)
Quarter: 2025Q4

REPORT INFORMATION
  Report Type: Spontaneous
  Country: JP (occurrence: JP)
  Receive Date: 20251230
  Receipt Date: 20251230
  Transmission Date: 20260118
  Serious: Yes (Hospitalization)
  Sender: ROCHE
  Company Number: JP-CHUGAI-2025042743

PATIENT
  Age: 7 Decade
  Sex: Male

DRUGS (1)
  1. PIASKY [Suspect]
     Active Substance: CROVALIMAB-AKKZ
     Indication: Paroxysmal nocturnal haemoglobinuria
     Dosage: 4.0 MILLILITER, ONCE/4WEEKS
     Route: 058
     Dates: start: 20250912

REACTIONS (2)
  - Cholecystitis [Recovered/Resolved]
  - Cholelithiasis [Unknown]
